FAERS Safety Report 21969018 (Version 1)
Quarter: 2023Q1

REPORT INFORMATION
  Report Type: Spontaneous
  Country: PK (occurrence: PK)
  Receive Date: 20230208
  Receipt Date: 20230208
  Transmission Date: 20230417
  Serious: Yes (Other)
  Sender: FDA-Public Use
  Company Number: PK-002147023-NVSC2023PK025415

PATIENT
  Sex: Male
  Weight: 73 kg

DRUGS (2)
  1. PAZOPANIB [Suspect]
     Active Substance: PAZOPANIB
     Indication: Renal cell carcinoma
     Dosage: 800 MG, QD
     Route: 065
     Dates: start: 202003
  2. PAZOPANIB [Suspect]
     Active Substance: PAZOPANIB
     Dosage: 400 MG (FOR LAST 3 MONTHS, 4 WEEKS ON AND 2 WEEKS OFF)
     Route: 065

REACTIONS (6)
  - Metastases to lung [Unknown]
  - Metastases to liver [Unknown]
  - Urinary tract obstruction [Recovered/Resolved]
  - Drug intolerance [Unknown]
  - Hypercalcaemia [Unknown]
  - Product prescribing error [Unknown]
